FAERS Safety Report 5076262-7 (Version None)
Quarter: 2006Q3

REPORT INFORMATION
  Report Type: 
  Country: None (occurrence: None)
  Receive Date: 20060804
  Receipt Date: 20060725
  Transmission Date: 20061208
  Serious: Yes (Other)
  Sender: FDA-Public Use
  Company Number: B0432867B

PATIENT
  Sex: 0

DRUGS (9)
  1. RETROVIR [Suspect]
     Indication: HIV INFECTION
     Dosage: TRANSPLACENTARY
     Route: 064
  2. EPIVIR [Suspect]
     Indication: HIV INFECTION
     Dosage: TRANSPLACENTARY
     Route: 064
  3. ZIAGEN [Suspect]
     Indication: HIV INFECTION
     Dosage: TRANSPLACENTARY
  4. TENOFOVIR (TENOFOVIR) [Suspect]
     Indication: HIV INFECTION
     Dosage: TRANSPLACENTARY
     Route: 064
  5. T-20 (T-20) [Suspect]
     Indication: HIV INFECTION
     Dosage: TRANSPLACENTARY
     Route: 064
  6. TIPRANAVIR (TIRPANAVIR) [Suspect]
     Indication: HIV INFECTION
     Dosage: TRANSPLACENTARY
     Route: 064
  7. LOPINAVIR [Concomitant]
  8. LAMIVUDINE [Concomitant]
  9. NEVIRAPINE [Concomitant]

REACTIONS (5)
  - CAESAREAN SECTION [None]
  - DRUG EXPOSURE DURING PREGNANCY [None]
  - HAEMOGLOBIN DECREASED [None]
  - NEONATAL DISORDER [None]
  - PREMATURE BABY [None]
